FAERS Safety Report 4688256-1 (Version None)
Quarter: 2005Q2

REPORT INFORMATION
  Report Type: 
  Country: None (occurrence: None)
  Receive Date: 20050609
  Receipt Date: 20050609
  Transmission Date: 20051028
  Serious: Yes (Death)
  Sender: FDA-Public Use
  Company Number: Q05-022

PATIENT
  Age: 64 Year
  Sex: Male
  Weight: 88.905 kg

DRUGS (3)
  1. QUADRAMET [Suspect]
     Indication: BLADDER CANCER
     Dosage: 89 MCI
     Dates: start: 20050324
  2. DURAGESIC-100 [Concomitant]
  3. ACTIQ [Concomitant]

REACTIONS (4)
  - METASTASES TO BONE MARROW [None]
  - METASTASES TO LUNG [None]
  - NEUTROPENIA [None]
  - PYREXIA [None]
